FAERS Safety Report 16680132 (Version 1)
Quarter: 2019Q3

REPORT INFORMATION
  Report Type: Spontaneous
  Country: US (occurrence: US)
  Receive Date: 20190807
  Receipt Date: 20190807
  Transmission Date: 20191004
  Serious: Yes (Other)
  Sender: FDA-Public Use
  Company Number: US-FRESENIUS KABI-FK201908596

PATIENT
  Age: 52 Year
  Sex: Male
  Weight: 65 kg

DRUGS (2)
  1. BACLOFEN. [Suspect]
     Active Substance: BACLOFEN
     Indication: PAIN IN EXTREMITY
     Route: 048
  2. MORPHINE SULFATE INJECTION (MANUFACTURER UNKNOWN) [Suspect]
     Active Substance: MORPHINE SULFATE
     Indication: PAIN IN EXTREMITY
     Route: 042

REACTIONS (2)
  - Drug interaction [Recovered/Resolved]
  - Neurotoxicity [Recovered/Resolved]
